FAERS Safety Report 19317610 (Version 1)
Quarter: 2021Q2

REPORT INFORMATION
  Report Type: Spontaneous
  Country: CN (occurrence: CN)
  Receive Date: 20210527
  Receipt Date: 20210527
  Transmission Date: 20210717
  Serious: Yes (Other)
  Sender: FDA-Public Use
  Company Number: CN-PFIZER INC-2021553811

PATIENT
  Age: 22 Year
  Sex: Female

DRUGS (1)
  1. HEMABATE [Suspect]
     Active Substance: CARBOPROST TROMETHAMINE
     Dosage: 250 UG
     Route: 030

REACTIONS (3)
  - Muscle twitching [Unknown]
  - Headache [Unknown]
  - Blood pressure increased [Unknown]
